FAERS Safety Report 5033316-9 (Version None)
Quarter: 2006Q2

REPORT INFORMATION
  Report Type: 
  Country: None (occurrence: None)
  Receive Date: 20060515
  Receipt Date: 20060216
  Transmission Date: 20061013
  Serious: No
  Sender: FDA-Public Use
  Company Number: S06-USA-00633-01

PATIENT
  Age: 96 Year
  Sex: Female

DRUGS (9)
  1. NAMENDA [Suspect]
     Indication: DEMENTIA ALZHEIMER'S TYPE
     Dosage: 5 MG QD PO
     Route: 048
  2. NAMENDA [Suspect]
     Indication: DEMENTIA ALZHEIMER'S TYPE
     Dosage: 5 MG BID PO
     Route: 048
  3. NAMENDA [Suspect]
     Indication: DEMENTIA ALZHEIMER'S TYPE
     Dosage: 15 MG QD PO
     Route: 048
  4. NAMENDA [Suspect]
     Indication: DEMENTIA ALZHEIMER'S TYPE
     Dosage: 10 MG BID PO
     Route: 048
  5. DIGOXIN [Suspect]
     Indication: CARDIAC FAILURE CONGESTIVE
  6. DIGOXIN [Suspect]
     Indication: HEART RATE IRREGULAR
  7. TOPROL-XL [Concomitant]
  8. SYNTHROID [Concomitant]
  9. ALPRAZOLAM [Concomitant]

REACTIONS (4)
  - AGITATION [None]
  - POLLAKIURIA [None]
  - RASH PRURITIC [None]
  - URINARY INCONTINENCE [None]
